FAERS Safety Report 16837781 (Version 1)
Quarter: 2019Q3

REPORT INFORMATION
  Report Type: Spontaneous
  Country: US (occurrence: US)
  Receive Date: 20190731
  Receipt Date: 20190731
  Transmission Date: 20191005
  Serious: Yes (Other)
  Sender: FDA-Public Use
  Company Number: None

PATIENT
  Age: 24 Year
  Sex: Male

DRUGS (1)
  1. HUMIRA [Suspect]
     Active Substance: ADALIMUMAB
     Indication: PSORIASIS
     Dosage: ?          QUANTITY:4 PENS;OTHER FREQUENCY:DA 1:2PENS, DA8:1P;?
     Route: 030
     Dates: start: 20190627

REACTIONS (1)
  - Chills [None]

NARRATIVE: CASE EVENT DATE: 20190729
